FAERS Safety Report 17241809 (Version 1)
Quarter: 2020Q1

REPORT INFORMATION
  Report Type: Spontaneous
  Country: SE (occurrence: SE)
  Receive Date: 20200107
  Receipt Date: 20200107
  Transmission Date: 20200409
  Serious: Yes (Hospitalization)
  Sender: FDA-Public Use
  Company Number: SE-MYLANLABS-2020M1001525

PATIENT
  Sex: Female

DRUGS (1)
  1. LERGIGAN (PROMETHAZINE) [Suspect]
     Active Substance: PROMETHAZINE HYDROCHLORIDE
     Indication: PRODUCT USED FOR UNKNOWN INDICATION
     Dosage: 31 TABLETTER
     Route: 048
     Dates: start: 20180823, end: 20180823

REACTIONS (9)
  - Depressed level of consciousness [Unknown]
  - Intentional overdose [Unknown]
  - Extensor plantar response [Unknown]
  - Pupil fixed [Unknown]
  - Intentional self-injury [Unknown]
  - Mydriasis [Unknown]
  - Tachycardia [Unknown]
  - Urinary retention [Unknown]
  - Staring [Unknown]

NARRATIVE: CASE EVENT DATE: 20180823
